FAERS Safety Report 6261705-3 (Version None)
Quarter: 2009Q3

REPORT INFORMATION
  Report Type: 
  Country: None (occurrence: None)
  Receive Date: 20090707
  Receipt Date: 20090707
  Transmission Date: 20100115
  Serious: Yes (Hospitalization)
  Sender: FDA-Public Use
  Company Number: None

PATIENT
  Sex: Female
  Weight: 63.5036 kg

DRUGS (1)
  1. EFFEXOR XR [Suspect]
     Indication: DEPRESSION
     Dosage: 1 1 PER DAY PO
     Route: 048
     Dates: start: 20081010, end: 20090211

REACTIONS (8)
  - AMNESIA [None]
  - ANXIETY [None]
  - CONFUSIONAL STATE [None]
  - FEAR [None]
  - GAIT DISTURBANCE [None]
  - INSOMNIA [None]
  - MOVEMENT DISORDER [None]
  - VOMITING [None]
